FAERS Safety Report 8234109-1 (Version None)
Quarter: 2012Q1

REPORT INFORMATION
  Report Type: 
  Country: None (occurrence: None)
  Receive Date: 20120326
  Receipt Date: 20120326
  Transmission Date: 20120608
  Serious: Yes (Hospitalization)
  Sender: FDA-Public Use
  Company Number: None

PATIENT
  Age: 62 Year
  Sex: Female

DRUGS (1)
  1. ATELVIA [Suspect]
     Indication: OSTEOPOROSIS
     Dosage: 35
     Route: 048
     Dates: start: 20120128, end: 20120209

REACTIONS (7)
  - NECK PAIN [None]
  - ARTHRALGIA [None]
  - MYOSITIS [None]
  - ACTIVITIES OF DAILY LIVING IMPAIRED [None]
  - CHEST PAIN [None]
  - MUSCULOSKELETAL PAIN [None]
  - BURSITIS [None]
